FAERS Safety Report 5421328-2 (Version None)
Quarter: 2007Q3

REPORT INFORMATION
  Report Type: 
  Country: None (occurrence: None)
  Receive Date: 20070718
  Receipt Date: 20061213
  Transmission Date: 20080115
  Serious: Yes (Other)
  Sender: FDA-Public Use
  Company Number: 2006153603

PATIENT
  Sex: Female
  Weight: 59 kg

DRUGS (5)
  1. CELEBREX [Suspect]
     Indication: ARTHRITIS
     Dosage: (100 MG)
  2. NEURONTIN [Concomitant]
  3. THYROID TAB [Concomitant]
  4. ALL OTHER THERAPEUTIC PRODUCTS (ALL OTHER THERAPEUTIC PRODUCTS) [Concomitant]
  5. PREMARIN [Concomitant]

REACTIONS (8)
  - CONTUSION [None]
  - FATIGUE [None]
  - HEART RATE ABNORMAL [None]
  - HYPERTENSION [None]
  - MYOCARDIAL INFARCTION [None]
  - NAUSEA [None]
  - RECTAL HAEMORRHAGE [None]
  - STRESS [None]
